FAERS Safety Report 12552326 (Version 1)
Quarter: 2016Q3

REPORT INFORMATION
  Report Type: Spontaneous
  Country: US (occurrence: None)
  Receive Date: 20160712
  Receipt Date: 20160712
  Transmission Date: 20161109
  Serious: Yes (Other)
  Sender: FDA-Public Use
  Company Number: None

PATIENT
  Age: 58 Year
  Sex: Female
  Weight: 63.5 kg

DRUGS (3)
  1. SERTRALINE [Concomitant]
     Active Substance: SERTRALINE HYDROCHLORIDE
  2. AFRIN [Suspect]
     Active Substance: OXYMETAZOLINE
     Indication: OTITIS MEDIA ACUTE
     Dosage: 2 SPRAY(S) ONCE A DAY INHALATION
     Route: 055
     Dates: start: 20160710, end: 20160710
  3. ASPIRIN. [Concomitant]
     Active Substance: ASPIRIN

REACTIONS (7)
  - Lethargy [None]
  - Hypertension [None]
  - Nausea [None]
  - Tachycardia [None]
  - Vomiting [None]
  - Somnolence [None]
  - Rhinitis [None]

NARRATIVE: CASE EVENT DATE: 20160710
